FAERS Safety Report 14867662 (Version 1)
Quarter: 2018Q2

REPORT INFORMATION
  Report Type: Spontaneous
  Country: IN (occurrence: IN)
  Receive Date: 20180508
  Receipt Date: 20180508
  Transmission Date: 20180711
  Serious: Yes (Other)
  Sender: FDA-Public Use
  Company Number: IN-DENTSPLY-2018SCDP000073

PATIENT

DRUGS (4)
  1. AMOXICILLIN SODIUM W/CLAVULANIC ACID [Concomitant]
     Active Substance: AMOXICILLIN\CLAVULANATE POTASSIUM
     Indication: ANTIBIOTIC PROPHYLAXIS
     Dosage: 1 DF, BID
  2. MIDAZOLAM [Concomitant]
     Active Substance: MIDAZOLAM HYDROCHLORIDE
     Indication: POSTICTAL STATE
     Dosage: 1 MG, UNK
     Route: 042
  3. 2% LIDOCAINE HCL INJECTION WITH EPINEPHRINE 1-100,000 [Suspect]
     Active Substance: EPINEPHRINE\LIDOCAINE HYDROCHLORIDE
     Indication: LOCAL ANAESTHESIA
     Dosage: 7.5 ML, OF 2% LIGNOCAINE WITH ADRENALINE
     Route: 004
  4. DICLOFENAC [Concomitant]
     Active Substance: DICLOFENAC
     Indication: TOOTHACHE
     Dosage: UNK

REACTIONS (3)
  - Loss of consciousness [Recovered/Resolved]
  - Unresponsive to stimuli [Recovered/Resolved]
  - Neurotoxicity [Recovered/Resolved]
